FAERS Safety Report 17152999 (Version 1)
Quarter: 2019Q4

REPORT INFORMATION
  Report Type: Spontaneous
  Country: CA (occurrence: CA)
  Receive Date: 20191213
  Receipt Date: 20191213
  Transmission Date: 20200122
  Serious: No
  Sender: FDA-Public Use
  Company Number: CA-UCBSA-2019052277

PATIENT
  Sex: Female
  Weight: 74.83 kg

DRUGS (1)
  1. VIMPAT [Suspect]
     Active Substance: LACOSAMIDE
     Indication: PRODUCT USED FOR UNKNOWN INDICATION
     Dosage: 100 MILLIGRAM,
     Route: 048

REACTIONS (2)
  - Abdominal discomfort [Recovered/Resolved]
  - Syncope [Recovered/Resolved]
